FAERS Safety Report 14194190 (Version 1)
Quarter: 2017Q4

REPORT INFORMATION
  Report Type: Spontaneous
  Country: US (occurrence: US)
  Receive Date: 20171116
  Receipt Date: 20171116
  Transmission Date: 20180321
  Serious: Yes (Other)
  Sender: FDA-Public Use
  Company Number: US-PFIZER INC-2016379053

PATIENT
  Age: 60 Year
  Sex: Female
  Weight: 58.97 kg

DRUGS (1)
  1. LYRICA [Suspect]
     Active Substance: PREGABALIN
     Indication: HERPES ZOSTER
     Dosage: 150 MG, 3X/DAY
     Route: 048

REACTIONS (6)
  - Hepatic failure [Not Recovered/Not Resolved]
  - Sleep apnoea syndrome [Not Recovered/Not Resolved]
  - Splenomegaly [Unknown]
  - Ammonia increased [Unknown]
  - Cholelithiasis [Unknown]
  - Hepatic cirrhosis [Unknown]

NARRATIVE: CASE EVENT DATE: 201610
